FAERS Safety Report 11319474 (Version 1)
Quarter: 2015Q3

REPORT INFORMATION
  Report Type: Spontaneous
  Country: US (occurrence: US)
  Receive Date: 20150729
  Receipt Date: 20150729
  Transmission Date: 20151125
  Serious: Yes (Hospitalization)
  Sender: FDA-Public Use
  Company Number: US-ROCHE-1614854

PATIENT
  Age: 52 Year
  Sex: Male

DRUGS (1)
  1. ACTEMRA [Suspect]
     Active Substance: TOCILIZUMAB
     Indication: RHEUMATOID ARTHRITIS
     Dosage: QOW
     Route: 058
     Dates: start: 20150623, end: 20150727

REACTIONS (4)
  - Vomiting [Unknown]
  - Respiratory tract congestion [Unknown]
  - Sinus headache [Unknown]
  - Cough [Unknown]

NARRATIVE: CASE EVENT DATE: 20150707
